FAERS Safety Report 10675075 (Version 1)
Quarter: 2014Q4

REPORT INFORMATION
  Report Type: Report from Study
  Country: MW (occurrence: MW)
  Receive Date: 20141224
  Receipt Date: 20141224
  Transmission Date: 20150529
  Serious: Yes (Death, Hospitalization, Other)
  Sender: FDA-Public Use
  Company Number: MW-BRISTOL-MYERS SQUIBB COMPANY-BMS-2014-002068

PATIENT
  Age: 30 Year
  Sex: Male
  Weight: 59.8 kg

DRUGS (2)
  1. EFAVIRENZ W/EMTRICITABINE/TENOFOVIR DISOPROXI [Suspect]
     Active Substance: EFAVIRENZ\EMTRICITABINE\TENOFOVIR DISOPROXIL FUMARATE
     Indication: ANTIRETROVIRAL THERAPY
     Dosage: 1 DF, QD
     Route: 048
     Dates: start: 20141204, end: 20141204
  2. ETOPOSIDE PHOSPHATE [Suspect]
     Active Substance: ETOPOSIDE PHOSPHATE
     Indication: ANTIRETROVIRAL THERAPY
     Dosage: 100 MG, Q12H
     Route: 048
     Dates: start: 20141204, end: 20141205

REACTIONS (12)
  - Hyponatraemia [None]
  - Blood pressure diastolic increased [None]
  - Generalised oedema [Fatal]
  - Right ventricular failure [Fatal]
  - Micturition frequency decreased [None]
  - Normochromic normocytic anaemia [None]
  - Acidosis [None]
  - Ascites [None]
  - Blood albumin decreased [Unknown]
  - Heart rate increased [None]
  - Pericardial effusion [None]
  - Pleural effusion [None]

NARRATIVE: CASE EVENT DATE: 20141204
